APPROVED DRUG PRODUCT: FOMEPIZOLE
Active Ingredient: FOMEPIZOLE
Strength: 1.5GM/1.5ML (1GM/ML)
Dosage Form/Route: INJECTABLE;INJECTION
Application: A216791 | Product #001 | TE Code: AP
Applicant: GLAND PHARMA LTD
Approved: Jul 6, 2023 | RLD: No | RS: No | Type: RX